FAERS Safety Report 5247274-5 (Version None)
Quarter: 2007Q1

REPORT INFORMATION
  Report Type: 
  Country: None (occurrence: None)
  Receive Date: 20070227
  Receipt Date: 20070213
  Transmission Date: 20070707
  Serious: Yes (Other)
  Sender: FDA-Public Use
  Company Number: PHBS2007JP02948

PATIENT
  Age: 72 Year
  Sex: Male

DRUGS (5)
  1. OPALMON [Concomitant]
     Route: 048
  2. JUVELA [Concomitant]
     Route: 061
  3. LAMISIL [Suspect]
     Indication: NAIL TINEA
     Route: 048
     Dates: start: 20070126
  4. LAMISIL [Suspect]
     Dosage: 250 MG/D
     Route: 048
     Dates: start: 20070209
  5. LAMISIL [Suspect]
     Dosage: UNK, UNK
     Route: 061
     Dates: start: 20070202

REACTIONS (5)
  - BACTERIAL INFECTION [None]
  - CONDITION AGGRAVATED [None]
  - INFLAMMATION [None]
  - NAIL TINEA [None]
  - OEDEMA PERIPHERAL [None]
